FAERS Safety Report 19449126 (Version 5)
Quarter: 2021Q3

REPORT INFORMATION
  Report Type: Report from Study
  Country: DE (occurrence: DE)
  Receive Date: 20210622
  Receipt Date: 20210915
  Transmission Date: 20211014
  Serious: Yes (Hospitalization, Other)
  Sender: FDA-Public Use
  Company Number: DE-TAKEDA-2021TUS038559

PATIENT
  Age: 51 Year
  Sex: Male

DRUGS (61)
  1. TEDUGLUTIDE [Suspect]
     Active Substance: TEDUGLUTIDE
     Dosage: 2 MILLIGRAM, 1/WEEK
     Route: 065
     Dates: start: 20190830, end: 20191014
  2. TEDUGLUTIDE [Suspect]
     Active Substance: TEDUGLUTIDE
     Dosage: 2.5 MILLIGRAM, 1/WEEK
     Route: 065
     Dates: start: 20191015, end: 20191027
  3. TEDUGLUTIDE [Suspect]
     Active Substance: TEDUGLUTIDE
     Dosage: 3.5 MILLIGRAM, 1/WEEK
     Route: 065
     Dates: start: 20191028, end: 20200214
  4. TEDUGLUTIDE [Suspect]
     Active Substance: TEDUGLUTIDE
     Dosage: 3.2 MILLIGRAM, 4/WEEK
     Route: 065
     Dates: start: 20200810, end: 20200819
  5. TEDUGLUTIDE [Suspect]
     Active Substance: TEDUGLUTIDE
     Dosage: 3.2 MILLIGRAM, 4/WEEK
     Route: 065
     Dates: start: 20200810, end: 20200819
  6. TEDUGLUTIDE [Suspect]
     Active Substance: TEDUGLUTIDE
     Dosage: 2.6 MILLIGRAM, 1/WEEK
     Route: 065
     Dates: start: 20200820, end: 202010
  7. TEDUGLUTIDE [Suspect]
     Active Substance: TEDUGLUTIDE
     Dosage: 3.2 MILLIGRAM/KILOGRAM, 4/WEEK
     Route: 065
     Dates: start: 20210901, end: 20210909
  8. TEDUGLUTIDE [Suspect]
     Active Substance: TEDUGLUTIDE
     Dosage: 2.8 MILLIGRAM/KILOGRAM, 6/WEEK
     Route: 065
     Dates: start: 20210909
  9. TEDUGLUTIDE [Suspect]
     Active Substance: TEDUGLUTIDE
     Dosage: 3.8 MILLIGRAM, 1/WEEK
     Route: 065
     Dates: start: 201904, end: 20190822
  10. TEDUGLUTIDE [Suspect]
     Active Substance: TEDUGLUTIDE
     Dosage: 2.5 MILLIGRAM, 1/WEEK
     Route: 065
     Dates: start: 20191015, end: 20191027
  11. TEDUGLUTIDE [Suspect]
     Active Substance: TEDUGLUTIDE
     Dosage: 3.5 MILLIGRAM, 1/WEEK
     Route: 065
     Dates: start: 20191028, end: 20200214
  12. TEDUGLUTIDE [Suspect]
     Active Substance: TEDUGLUTIDE
     Dosage: 3.2 MILLIGRAM, 6/WEEK
     Route: 065
     Dates: start: 20210412, end: 20210831
  13. TEDUGLUTIDE [Suspect]
     Active Substance: TEDUGLUTIDE
     Dosage: 3.2 MILLIGRAM/KILOGRAM, 4/WEEK
     Route: 065
     Dates: start: 20210901, end: 20210909
  14. TEDUGLUTIDE [Suspect]
     Active Substance: TEDUGLUTIDE
     Dosage: 2.8 MILLIGRAM/KILOGRAM, 6/WEEK
     Route: 065
     Dates: start: 20210909
  15. NEUROBION FORTE [Concomitant]
     Active Substance: CYANOCOBALAMIN\PYRIDOXINE HYDROCHLORIDE\THIAMINE DISULFIDE
     Indication: VITAMIN B6 DEFICIENCY
     Dosage: 82.27 MILLIGRAM, QD
     Route: 048
     Dates: start: 20210308
  16. TEDUGLUTIDE [Suspect]
     Active Substance: TEDUGLUTIDE
     Dosage: 4 MILLIGRAM, 1/WEEK
     Route: 065
     Dates: start: 20190311
  17. TEDUGLUTIDE [Suspect]
     Active Substance: TEDUGLUTIDE
     Dosage: 3.5 MILLIGRAM, 1/WEEK
     Route: 065
     Dates: start: 20191028, end: 20200214
  18. TEDUGLUTIDE [Suspect]
     Active Substance: TEDUGLUTIDE
     Dosage: 3.2 MILLIGRAM, 4/WEEK
     Route: 065
     Dates: start: 20200810, end: 20200819
  19. TEDUGLUTIDE [Suspect]
     Active Substance: TEDUGLUTIDE
     Dosage: 2.6 MILLIGRAM, 1/WEEK
     Route: 065
     Dates: start: 20200820, end: 202010
  20. TEDUGLUTIDE [Suspect]
     Active Substance: TEDUGLUTIDE
     Dosage: 3.2 MILLIGRAM, 6/WEEK
     Route: 065
     Dates: start: 20210412, end: 20210831
  21. TEDUGLUTIDE [Suspect]
     Active Substance: TEDUGLUTIDE
     Indication: SHORT-BOWEL SYNDROME
     Dosage: 4.25 MILLIGRAM, 1/WEEK
     Route: 065
     Dates: start: 20190111, end: 20190310
  22. TEDUGLUTIDE [Suspect]
     Active Substance: TEDUGLUTIDE
     Dosage: 4 MILLIGRAM, 1/WEEK
     Route: 065
     Dates: start: 20190311
  23. TEDUGLUTIDE [Suspect]
     Active Substance: TEDUGLUTIDE
     Dosage: 4 MILLIGRAM, 1/WEEK
     Route: 065
     Dates: start: 20190311
  24. TEDUGLUTIDE [Suspect]
     Active Substance: TEDUGLUTIDE
     Dosage: 3.8 MILLIGRAM, 1/WEEK
     Route: 065
     Dates: start: 201904, end: 20190822
  25. TEDUGLUTIDE [Suspect]
     Active Substance: TEDUGLUTIDE
     Dosage: 3.8 MILLIGRAM, 4/WEEK
     Route: 065
     Dates: start: 20190823, end: 20190829
  26. TEDUGLUTIDE [Suspect]
     Active Substance: TEDUGLUTIDE
     Dosage: 3.8 MILLIGRAM, 4/WEEK
     Route: 065
     Dates: start: 20190823, end: 20190829
  27. TEDUGLUTIDE [Suspect]
     Active Substance: TEDUGLUTIDE
     Dosage: 2.5 MILLIGRAM, 1/WEEK
     Route: 065
     Dates: start: 20191015, end: 20191027
  28. TEDUGLUTIDE [Suspect]
     Active Substance: TEDUGLUTIDE
     Dosage: 3.2 MILLIGRAM, 1/WEEK
     Route: 065
     Dates: start: 20200218
  29. TEDUGLUTIDE [Suspect]
     Active Substance: TEDUGLUTIDE
     Dosage: 3.2 MILLIGRAM, 1/WEEK
     Route: 065
     Dates: start: 202010, end: 20210410
  30. TEDUGLUTIDE [Suspect]
     Active Substance: TEDUGLUTIDE
     Dosage: 3.2 MILLIGRAM, 1/WEEK
     Route: 065
     Dates: start: 202010, end: 20210410
  31. TEDUGLUTIDE [Suspect]
     Active Substance: TEDUGLUTIDE
     Dosage: 3.2 MILLIGRAM, 6/WEEK
     Route: 065
     Dates: start: 20210412, end: 20210831
  32. TEDUGLUTIDE [Suspect]
     Active Substance: TEDUGLUTIDE
     Dosage: 3.2 MILLIGRAM, 6/WEEK
     Route: 065
     Dates: start: 20210412, end: 20210831
  33. TEDUGLUTIDE [Suspect]
     Active Substance: TEDUGLUTIDE
     Dosage: 3.2 MILLIGRAM/KILOGRAM, 4/WEEK
     Route: 065
     Dates: start: 20210901, end: 20210909
  34. UNACID [Concomitant]
     Indication: INFECTION
     Dosage: 750 MILLIGRAM, BID
     Route: 048
     Dates: start: 20210205, end: 20210209
  35. TRAMAL [Concomitant]
     Active Substance: TRAMADOL
     Indication: FLANK PAIN
     Dosage: 15 GTT DROPS, TID
     Route: 048
     Dates: start: 20201102
  36. TEDUGLUTIDE [Suspect]
     Active Substance: TEDUGLUTIDE
     Dosage: 3.2 MILLIGRAM, 4/WEEK
     Route: 065
     Dates: start: 20200810, end: 20200819
  37. TEDUGLUTIDE [Suspect]
     Active Substance: TEDUGLUTIDE
     Indication: SHORT-BOWEL SYNDROME
     Dosage: 4.25 MILLIGRAM, 1/WEEK
     Route: 065
     Dates: start: 20190111, end: 20190310
  38. TEDUGLUTIDE [Suspect]
     Active Substance: TEDUGLUTIDE
     Dosage: 3.8 MILLIGRAM, 1/WEEK
     Route: 065
     Dates: start: 201904, end: 20190822
  39. TEDUGLUTIDE [Suspect]
     Active Substance: TEDUGLUTIDE
     Dosage: 2 MILLIGRAM, 1/WEEK
     Route: 065
     Dates: start: 20190830, end: 20191014
  40. TEDUGLUTIDE [Suspect]
     Active Substance: TEDUGLUTIDE
     Dosage: 2.6 MILLIGRAM, 1/WEEK
     Route: 065
     Dates: start: 20200820, end: 202010
  41. TEDUGLUTIDE [Suspect]
     Active Substance: TEDUGLUTIDE
     Dosage: 3.2 MILLIGRAM/KILOGRAM, 4/WEEK
     Route: 065
     Dates: start: 20210901, end: 20210909
  42. CEPHALEXIN. [Concomitant]
     Active Substance: CEPHALEXIN
     Indication: WOUND
     Dosage: 1000 MILLIGRAM, QD
     Route: 048
     Dates: start: 20210107, end: 20210115
  43. ASPIRIN. [Concomitant]
     Active Substance: ASPIRIN
     Indication: PROPHYLAXIS
     Dosage: 100 MILLIGRAM, QD
     Route: 048
     Dates: start: 2018
  44. TEDUGLUTIDE [Suspect]
     Active Substance: TEDUGLUTIDE
     Dosage: 2 MILLIGRAM, 1/WEEK
     Route: 065
     Dates: start: 20190830, end: 20191014
  45. TEDUGLUTIDE [Suspect]
     Active Substance: TEDUGLUTIDE
     Dosage: 2.5 MILLIGRAM, 1/WEEK
     Route: 065
     Dates: start: 20191015, end: 20191027
  46. TEDUGLUTIDE [Suspect]
     Active Substance: TEDUGLUTIDE
     Dosage: 2.6 MILLIGRAM, 1/WEEK
     Route: 065
     Dates: start: 20200820, end: 202010
  47. TEDUGLUTIDE [Suspect]
     Active Substance: TEDUGLUTIDE
     Dosage: 3.2 MILLIGRAM, 1/WEEK
     Route: 065
     Dates: start: 202010, end: 20210410
  48. TEDUGLUTIDE [Suspect]
     Active Substance: TEDUGLUTIDE
     Dosage: 3.2 MILLIGRAM, 1/WEEK
     Route: 065
     Dates: start: 202010, end: 20210410
  49. TEDUGLUTIDE [Suspect]
     Active Substance: TEDUGLUTIDE
     Dosage: 2.8 MILLIGRAM/KILOGRAM, 6/WEEK
     Route: 065
     Dates: start: 20210909
  50. TEDUGLUTIDE [Suspect]
     Active Substance: TEDUGLUTIDE
     Dosage: 2.8 MILLIGRAM/KILOGRAM, 6/WEEK
     Route: 065
     Dates: start: 20210909
  51. TEDUGLUTIDE [Suspect]
     Active Substance: TEDUGLUTIDE
     Indication: SHORT-BOWEL SYNDROME
     Dosage: 4.25 MILLIGRAM, 1/WEEK
     Route: 065
     Dates: start: 20190111, end: 20190310
  52. TEDUGLUTIDE [Suspect]
     Active Substance: TEDUGLUTIDE
     Indication: SHORT-BOWEL SYNDROME
     Dosage: 4.25 MILLIGRAM, 1/WEEK
     Route: 065
     Dates: start: 20190111, end: 20190310
  53. TEDUGLUTIDE [Suspect]
     Active Substance: TEDUGLUTIDE
     Dosage: 4 MILLIGRAM, 1/WEEK
     Route: 065
     Dates: start: 20190311
  54. TEDUGLUTIDE [Suspect]
     Active Substance: TEDUGLUTIDE
     Dosage: 3.8 MILLIGRAM, 1/WEEK
     Route: 065
     Dates: start: 201904, end: 20190822
  55. TEDUGLUTIDE [Suspect]
     Active Substance: TEDUGLUTIDE
     Dosage: 3.8 MILLIGRAM, 4/WEEK
     Route: 065
     Dates: start: 20190823, end: 20190829
  56. TEDUGLUTIDE [Suspect]
     Active Substance: TEDUGLUTIDE
     Dosage: 3.8 MILLIGRAM, 4/WEEK
     Route: 065
     Dates: start: 20190823, end: 20190829
  57. TEDUGLUTIDE [Suspect]
     Active Substance: TEDUGLUTIDE
     Dosage: 2 MILLIGRAM, 1/WEEK
     Route: 065
     Dates: start: 20190830, end: 20191014
  58. TEDUGLUTIDE [Suspect]
     Active Substance: TEDUGLUTIDE
     Dosage: 3.5 MILLIGRAM, 1/WEEK
     Route: 065
     Dates: start: 20191028, end: 20200214
  59. TEDUGLUTIDE [Suspect]
     Active Substance: TEDUGLUTIDE
     Dosage: 3.2 MILLIGRAM, 1/WEEK
     Route: 065
     Dates: start: 20200218
  60. TEDUGLUTIDE [Suspect]
     Active Substance: TEDUGLUTIDE
     Dosage: 3.2 MILLIGRAM, 1/WEEK
     Route: 065
     Dates: start: 20200218
  61. TEDUGLUTIDE [Suspect]
     Active Substance: TEDUGLUTIDE
     Dosage: 3.2 MILLIGRAM, 1/WEEK
     Route: 065
     Dates: start: 20200218

REACTIONS (3)
  - Fructose intolerance [Not Recovered/Not Resolved]
  - Vascular device infection [Recovered/Resolved]
  - Hepatic fibrosis [Not Recovered/Not Resolved]

NARRATIVE: CASE EVENT DATE: 202106
